FAERS Safety Report 4461551-7 (Version None)
Quarter: 2004Q3

REPORT INFORMATION
  Report Type: 
  Country: None (occurrence: None)
  Receive Date: 20040908
  Receipt Date: 20040225
  Transmission Date: 20050211
  Serious: Yes (Hospitalization)
  Sender: FDA-Public Use
  Company Number: MK200402-0245-1

PATIENT
  Age: 68 Year
  Sex: Female

DRUGS (1)
  1. OXYCODONE HYDROCHLORIDE/ACEETAMINOPHEN 5MG/500MG [Suspect]
     Dosage: 00MG PO Q 4 HOURS PRN

REACTIONS (1)
  - OVERDOSE [None]
